FAERS Safety Report 25555081 (Version 1)
Quarter: 2025Q3

REPORT INFORMATION
  Report Type: Spontaneous
  Country: JP (occurrence: JP)
  Receive Date: 20250715
  Receipt Date: 20250715
  Transmission Date: 20251020
  Serious: Yes (Hospitalization)
  Sender: CHATTEM
  Company Number: JP-SA-2016SA017771

PATIENT
  Age: 54 Year
  Sex: Female
  Weight: 74 kg

DRUGS (7)
  1. ALLEGRA [Suspect]
     Active Substance: FEXOFENADINE HYDROCHLORIDE
     Indication: Prophylaxis
     Route: 048
     Dates: start: 20151221, end: 20160108
  2. FLUTICASONE FUROATE\VILANTEROL TRIFENATATE [Suspect]
     Active Substance: FLUTICASONE FUROATE\VILANTEROL TRIFENATATE
     Indication: Asthma
     Dosage: DOSE 1 INHALATION DAILY
     Route: 055
     Dates: start: 20150702
  3. MONTELUKAST SODIUM [Suspect]
     Active Substance: MONTELUKAST SODIUM
     Indication: Asthma
     Dosage: 10 MG, QD
     Route: 048
     Dates: start: 20150910
  4. NASONEX [Suspect]
     Active Substance: MOMETASONE FUROATE
     Indication: Rhinitis allergic
     Dosage: 2 DF, QD
     Route: 045
     Dates: start: 20150818
  5. PREDONINE [Suspect]
     Active Substance: PREDNISOLONE
     Indication: Asthma
     Route: 048
     Dates: end: 20161008
  6. DUPILUMAB vs Placebo [Concomitant]
     Indication: Asthma
     Route: 065
     Dates: start: 20150207
  7. INFLUENZA VIRUS VACCINE [Concomitant]
     Active Substance: INFLUENZA VIRUS VACCINE
     Indication: Prophylaxis
     Route: 030
     Dates: start: 20150107, end: 20150107

REACTIONS (2)
  - Asthma [Recovered/Resolved]
  - Wheezing [Recovered/Resolved]

NARRATIVE: CASE EVENT DATE: 20160107
